FAERS Safety Report 9016295 (Version 4)
Quarter: 2013Q1

REPORT INFORMATION
  Report Type: Report from Study
  Country: US (occurrence: US)
  Receive Date: 20130116
  Receipt Date: 20130219
  Transmission Date: 20140127
  Serious: Yes (Other)
  Sender: FDA-Public Use
  Company Number: US-009507513-1301USA005402

PATIENT
  Age: 45 Year
  Sex: Female
  Weight: 59.41 kg

DRUGS (2)
  1. ASENAPINE MALEATE-BIPOLAR DISORDER [Suspect]
     Indication: BIPOLAR I DISORDER
     Dosage: 10 MG, BID
     Route: 060
     Dates: start: 20121208, end: 20130104
  2. NAPROXEN [Concomitant]
     Indication: PAIN
     Dosage: 220 MG, PRN
     Route: 048
     Dates: start: 20121216

REACTIONS (2)
  - Confusional state [Recovered/Resolved]
  - Accidental overdose [Recovered/Resolved]
